FAERS Safety Report 4903363-3 (Version None)
Quarter: 2006Q1

REPORT INFORMATION
  Report Type: 
  Country: None (occurrence: None)
  Receive Date: 20060208
  Receipt Date: 20050202
  Transmission Date: 20060701
  Serious: Yes (Life-Threatening, Hospitalization, Other)
  Sender: FDA-Public Use
  Company Number: US-RB-1303-2005

PATIENT
  Sex: Male

DRUGS (2)
  1. BUPRENORPHINE HCL [Suspect]
     Indication: DRUG DEPENDENCE
     Dosage: STARTED 8 MGS. ON 23/SEP/2004
     Route: 060
     Dates: start: 20040923, end: 20050101
  2. CLONIDINE [Concomitant]
     Indication: BACK PAIN
     Route: 048

REACTIONS (3)
  - DRUG WITHDRAWAL SYNDROME [None]
  - INCORRECT ROUTE OF DRUG ADMINISTRATION [None]
  - RESPIRATORY ARREST [None]
